FAERS Safety Report 7215059-6 (Version None)
Quarter: 2011Q1

REPORT INFORMATION
  Report Type: 
  Country: None (occurrence: None)
  Receive Date: 20110107
  Receipt Date: 20100730
  Transmission Date: 20110831
  Serious: No
  Sender: FDA-Public Use
  Company Number: A0873232A

PATIENT
  Age: 60 Year
  Sex: Male

DRUGS (3)
  1. LOVAZA [Suspect]
     Indication: BLOOD CHOLESTEROL INCREASED
     Dosage: 4CAP PER DAY
     Route: 048
     Dates: start: 20080101, end: 20100724
  2. VERAPAMIL [Concomitant]
  3. NEXIUM [Concomitant]

REACTIONS (1)
  - ABDOMINAL DISCOMFORT [None]
